FAERS Safety Report 13470669 (Version 1)
Quarter: 2017Q2

REPORT INFORMATION
  Report Type: Spontaneous
  Country: US (occurrence: US)
  Receive Date: 20170424
  Receipt Date: 20170424
  Transmission Date: 20170830
  Serious: Yes (Hospitalization)
  Sender: FDA-Public Use
  Company Number: US-TAKEDA-2017TUS008015

PATIENT
  Sex: Female
  Weight: 69.39 kg

DRUGS (3)
  1. DOCUSATE [Concomitant]
     Active Substance: DOCUSATE
     Dosage: UNK, QD
     Route: 048
     Dates: start: 201611
  2. ENTYVIO [Suspect]
     Active Substance: VEDOLIZUMAB
     Indication: CROHN^S DISEASE
     Dosage: UNK
     Route: 042
     Dates: start: 201512
  3. MERCAPTOPURINE. [Concomitant]
     Active Substance: MERCAPTOPURINE
     Indication: CROHN^S DISEASE
     Dosage: 75 MG, QD
     Route: 048
     Dates: start: 201512

REACTIONS (4)
  - Pregnancy [Unknown]
  - Off label use [Unknown]
  - Faecaloma [Recovered/Resolved]
  - Therapeutic reaction time decreased [Unknown]
